FAERS Safety Report 24548604 (Version 1)
Quarter: 2024Q4

REPORT INFORMATION
  Report Type: Other
  Country: US (occurrence: US)
  Receive Date: 20241025
  Receipt Date: 20241025
  Transmission Date: 20250114
  Serious: Yes (Death, Other)
  Sender: YOUNGTECH PHARMACEUTICALS, INC
  Company Number: US-YoungTech Pharmaceuticals, Inc.-2163809

PATIENT
  Age: 86 Year
  Sex: Male

DRUGS (2)
  1. METOPROLOL TARTRATE [Suspect]
     Active Substance: METOPROLOL TARTRATE
     Indication: Cardiac failure
  2. OXYGEN [Concomitant]
     Active Substance: OXYGEN

REACTIONS (6)
  - BRASH syndrome [Fatal]
  - Product use in unapproved indication [Unknown]
  - Atrioventricular block first degree [Fatal]
  - Aspiration [Fatal]
  - Respiratory failure [Fatal]
  - Encephalopathy [Fatal]
